FAERS Safety Report 10031233 (Version 3)
Quarter: 2014Q3

REPORT INFORMATION
  Report Type: Report from Study
  Country: US (occurrence: US)
  Receive Date: 20140324
  Receipt Date: 20140826
  Transmission Date: 20150326
  Serious: Yes (Other)
  Sender: FDA-Public Use
  Company Number: US-ROCHE-1363863

PATIENT
  Sex: Male

DRUGS (6)
  1. NUTROPIN AQ [Suspect]
     Active Substance: SOMATROPIN
     Indication: GROWTH HORMONE DEFICIENCY
  2. CORTEF [Concomitant]
     Active Substance: HYDROCORTISONE
     Dosage: 15 MG EVERY MORNING AND 5 MG EVERY PM
     Route: 065
  3. ADVICOR [Concomitant]
     Active Substance: LOVASTATIN\NIACIN
     Dosage: QHS 500/20 MG
     Route: 065
  4. NUTROPIN AQ [Suspect]
     Active Substance: SOMATROPIN
     Indication: HYPOPITUITARISM
     Dosage: QHS
     Route: 058
  5. TESTOSTERON [Concomitant]
     Indication: SECONDARY HYPOGONADISM
     Route: 065
  6. SYNTHROID [Concomitant]
     Active Substance: LEVOTHYROXINE SODIUM
     Route: 065

REACTIONS (3)
  - Pituitary tumour [Not Recovered/Not Resolved]
  - Hyperlipidaemia [Unknown]
  - Expired product administered [Unknown]
